FAERS Safety Report 6373827-7 (Version None)
Quarter: 2009Q3

REPORT INFORMATION
  Report Type: 
  Country: None (occurrence: None)
  Receive Date: 20090924
  Receipt Date: 20090528
  Transmission Date: 20100115
  Serious: Yes (Hospitalization)
  Sender: FDA-Public Use
  Company Number: US-ASTRAZENECA-2009UW13617

PATIENT
  Age: 498 Month
  Sex: Male
  Weight: 88.5 kg

DRUGS (7)
  1. SEROQUEL [Suspect]
     Indication: BIPOLAR DISORDER
     Route: 048
     Dates: start: 20080906
  2. SEROQUEL [Suspect]
     Indication: DEPRESSION
     Route: 048
     Dates: start: 20080906
  3. ABILIFY [Concomitant]
  4. GEODON [Concomitant]
  5. HALDOL [Concomitant]
  6. RISPERDAL [Concomitant]
  7. ZYPREXA [Concomitant]

REACTIONS (3)
  - DIABETES MELLITUS [None]
  - DIABETIC COMA [None]
  - RESTLESS LEGS SYNDROME [None]
